FAERS Safety Report 9833160 (Version 1)
Quarter: 2014Q1

REPORT INFORMATION
  Report Type: Spontaneous
  Country: US (occurrence: US)
  Receive Date: 20140121
  Receipt Date: 20140121
  Transmission Date: 20141002
  Serious: No
  Sender: FDA-Public Use
  Company Number: US-BAUSCH-BL-2012-002181

PATIENT
  Age: 66 Year
  Sex: Female

DRUGS (4)
  1. ALAWAY (KETOTIFEN FUMARATE OPHTHALMIC SOLUTION) [Suspect]
     Indication: EYE PRURITUS
     Dosage: 1 DROP IN RIGHT EYE; ONCE;OPHTHALMIC
     Route: 047
     Dates: start: 20121203, end: 20121203
  2. OLMESARTAN MEDOXOMIL [Concomitant]
     Indication: HYPERTENSION
  3. FAMOTIDINE [Concomitant]
     Indication: GASTROOESOPHAGEAL REFLUX DISEASE
  4. IBUPROFEN [Concomitant]
     Indication: ARTHRALGIA

REACTIONS (1)
  - Eye irritation [Recovered/Resolved]
